FAERS Safety Report 7868476-5 (Version None)
Quarter: 2011Q4

REPORT INFORMATION
  Report Type: 
  Country: None (occurrence: None)
  Receive Date: 20111028
  Receipt Date: 20101213
  Transmission Date: 20120403
  Serious: No
  Sender: FDA-Public Use
  Company Number: US-AMGEN-USASP2010008883

PATIENT
  Age: 53 Year
  Sex: Female
  Weight: 61.224 kg

DRUGS (21)
  1. FIORICET [Concomitant]
  2. CALCIUM [Concomitant]
     Dosage: 600 MG, UNK
  3. VICODIN [Concomitant]
  4. HYDROCHLOROTHIAZIDE [Concomitant]
     Dosage: 12.5 MG, UNK
  5. MULTIVITAMIN                       /00097801/ [Concomitant]
  6. ZANAFLEX [Concomitant]
     Dosage: 2 MG, UNK
  7. VITAMIN D [Concomitant]
     Dosage: 400 IU, UNK
  8. FOLIC ACID [Concomitant]
     Dosage: 1 UNK, UNK
  9. VITAMIN B COMPLEX CAP [Suspect]
  10. GABAPENTIN [Concomitant]
     Dosage: 100 MG, UNK
  11. MAGNESIUM [Concomitant]
     Dosage: 30 MG, UNK
  12. MOBIC [Concomitant]
  13. BIOTIN [Concomitant]
     Dosage: 10 MG, UNK
  14. ENBREL [Suspect]
     Indication: PRODUCT USED FOR UNKNOWN INDICATION
     Dosage: 50 MG, UNK
     Route: 058
  15. LEUCOVORIN CALCIUM [Concomitant]
     Dosage: 5 MG, UNK
  16. ELMIRON [Concomitant]
     Dosage: 100 MG, UNK
  17. AMITRIPTYLINE HCL [Concomitant]
     Dosage: 10 MG, UNK
  18. KLONOPIN [Concomitant]
     Dosage: 0.5 MG, UNK
  19. TEGRETOL [Concomitant]
     Dosage: 200 MG, UNK
  20. PRILOSEC [Concomitant]
     Dosage: 10 MG, UNK
  21. POTASSIUM [Concomitant]
     Dosage: 75 MG, UNK

REACTIONS (2)
  - MOOD ALTERED [None]
  - MENTAL DISORDER [None]
